FAERS Safety Report 24783934 (Version 1)
Quarter: 2024Q4

REPORT INFORMATION
  Report Type: Spontaneous
  Country: JP (occurrence: JP)
  Receive Date: 20241227
  Receipt Date: 20241227
  Transmission Date: 20250115
  Serious: Yes (Death, Hospitalization, Other)
  Sender: BAYER HEALTHCARE PHARMACEUTICALS INC.
  Company Number: JP-BAYER-2024A140955

PATIENT
  Age: 79 Year
  Sex: Male
  Weight: 60.1 kg

DRUGS (5)
  1. XOFIGO [Suspect]
     Active Substance: RADIUM RA-223 DICHLORIDE
     Indication: Hormone-refractory prostate cancer
     Dosage: UNK, ONCE
     Dates: start: 20220217
  2. XOFIGO [Suspect]
     Active Substance: RADIUM RA-223 DICHLORIDE
     Indication: Metastases to bone
     Dosage: UNK
     Dates: start: 20220317
  3. XOFIGO [Suspect]
     Active Substance: RADIUM RA-223 DICHLORIDE
     Indication: Hormone-refractory prostate cancer
     Dosage: UNK
     Dates: start: 20220414, end: 20220414
  4. CALCIUM CHLORIDE\POTASSIUM CHLORIDE\SODIUM ACETATE\SODIUM CHLORIDE [Concomitant]
     Active Substance: CALCIUM CHLORIDE\POTASSIUM CHLORIDE\SODIUM ACETATE\SODIUM CHLORIDE
     Dosage: UNK
     Dates: start: 20220523
  5. DOPAMINE HYDROCHLORIDE [Concomitant]
     Active Substance: DOPAMINE HYDROCHLORIDE
     Dosage: UNK
     Dates: start: 20220523

REACTIONS (18)
  - Anaemia [Fatal]
  - Thrombocytopenia [Fatal]
  - Hormone-refractory prostate cancer [Fatal]
  - Respiratory arrest [Fatal]
  - Cardiac arrest [Fatal]
  - Malaise [None]
  - Pancytopenia [Unknown]
  - Urinary retention [None]
  - Neurogenic bladder [None]
  - Pyrexia [None]
  - Respiratory disorder [None]
  - Hypocoagulable state [None]
  - Disseminated intravascular coagulation [None]
  - Malignant pleural effusion [None]
  - Pleural effusion [None]
  - Pneumonia [None]
  - Platelet count decreased [None]
  - Blood pressure decreased [None]

NARRATIVE: CASE EVENT DATE: 20220414
